APPROVED DRUG PRODUCT: SOTALOL HYDROCHLORIDE
Active Ingredient: SOTALOL HYDROCHLORIDE
Strength: 160MG
Dosage Form/Route: TABLET;ORAL
Application: A075563 | Product #003 | TE Code: AB
Applicant: OXFORD PHARMACEUTICALS LLC
Approved: Nov 7, 2003 | RLD: No | RS: No | Type: RX